FAERS Safety Report 9433796 (Version 2)
Quarter: 2014Q2

REPORT INFORMATION
  Report Type: Spontaneous
  Country: IT (occurrence: IT)
  Receive Date: 20130731
  Receipt Date: 20140418
  Transmission Date: 20141212
  Serious: Yes (Disabling)
  Sender: FDA-Public Use
  Company Number: PHHY2013IT080017

PATIENT
  Age: 76 Year
  Sex: Female

DRUGS (6)
  1. ZOMETA [Suspect]
     Indication: BREAST CANCER METASTATIC
     Dosage: 1 DF, MONTHLY
     Route: 042
     Dates: start: 20090401, end: 20130301
  2. FASLODEX [Concomitant]
     Dosage: UNK UKN, UNK
     Dates: start: 200904
  3. FASLODEX [Concomitant]
     Dosage: UNK UKN, UNK
     Dates: start: 201107
  4. TAXOTERE [Concomitant]
     Dosage: UNK UKN, UNK
     Dates: start: 20090401, end: 20100401
  5. VINORELBINE [Concomitant]
     Dosage: UNK UKN, UNK
     Dates: start: 20100501, end: 20110101
  6. CAPECITABINE [Concomitant]
     Dosage: UNK UKN, UNK
     Dates: start: 20110201, end: 20110228

REACTIONS (3)
  - Osteonecrosis of jaw [Recovering/Resolving]
  - Exposed bone in jaw [Unknown]
  - Purulence [Unknown]
